FAERS Safety Report 6909767-1 (Version None)
Quarter: 2010Q3

REPORT INFORMATION
  Report Type: 
  Country: None (occurrence: None)
  Receive Date: 20100806
  Receipt Date: 20100729
  Transmission Date: 20110219
  Serious: Yes (Other)
  Sender: FDA-Public Use
  Company Number: US-BIOGENIDEC-2010BI024178

PATIENT
  Sex: Female

DRUGS (2)
  1. AVONEX [Suspect]
     Indication: MULTIPLE SCLEROSIS
     Route: 030
     Dates: start: 20060721, end: 20091014
  2. AVONEX [Suspect]
     Route: 030
     Dates: start: 20100618

REACTIONS (2)
  - BRAIN NEOPLASM [None]
  - HAMARTOMA [None]
